FAERS Safety Report 6119941-2 (Version None)
Quarter: 2009Q1

REPORT INFORMATION
  Report Type: 
  Country: None (occurrence: None)
  Receive Date: 20090316
  Receipt Date: 20090302
  Transmission Date: 20090719
  Serious: Yes (Other)
  Sender: FDA-Public Use
  Company Number: BR-ROCHE-620636

PATIENT

DRUGS (4)
  1. MYCOPHENOLATE MOFETIL [Suspect]
     Route: 065
  2. MYFORTIC [Suspect]
     Route: 065
  3. CYCLOSPORINE [Suspect]
     Route: 065
  4. SIROLIMUS [Suspect]
     Route: 065

REACTIONS (1)
  - TRANSPLANT REJECTION [None]
